FAERS Safety Report 7368532-4 (Version None)
Quarter: 2011Q1

REPORT INFORMATION
  Report Type: 
  Country: None (occurrence: None)
  Receive Date: 20110323
  Receipt Date: 20110302
  Transmission Date: 20110831
  Serious: No
  Sender: FDA-Public Use
  Company Number: US-B.I. PHARMACEUTICALS,INC./RIDGEFIELD-2011-BP-01919BP

PATIENT
  Sex: Female

DRUGS (7)
  1. ADCIRCA [Concomitant]
     Indication: PULMONARY HYPERTENSION
     Dosage: 40 MG
  2. DILTIAZEM [Concomitant]
     Indication: HYPERTENSION
     Dosage: 180 MG
  3. SPIRIVA [Suspect]
     Indication: DYSPNOEA
  4. SPIRIVA [Suspect]
  5. SPIRIVA [Suspect]
     Indication: PULMONARY HYPERTENSION
     Dosage: 18 MCG
     Route: 055
     Dates: start: 20110106
  6. SPIRIVA [Suspect]
     Indication: ASTHMA
  7. COUMADIN [Concomitant]
     Indication: ATRIAL FIBRILLATION

REACTIONS (2)
  - DYSPNOEA [None]
  - DRY SKIN [None]
